FAERS Safety Report 6702188-6 (Version None)
Quarter: 2010Q2

REPORT INFORMATION
  Report Type: 
  Country: None (occurrence: None)
  Receive Date: 20100429
  Receipt Date: 20100420
  Transmission Date: 20101027
  Serious: Yes (Hospitalization)
  Sender: FDA-Public Use
  Company Number: GB-PFIZER INC-2010043267

PATIENT
  Age: 60 Year
  Sex: Female

DRUGS (8)
  1. SUNITINIB MALATE [Suspect]
     Indication: HEPATIC NEOPLASM MALIGNANT
     Dosage: 37.5 MG, 1X/DAY
     Route: 048
     Dates: start: 20100319, end: 20100330
  2. MENADIOL [Concomitant]
     Indication: VITAMIN K DEFICIENCY
     Dosage: 10 MG, 1X/DAY
     Dates: start: 20090817
  3. SPIRONOLACTONE [Concomitant]
     Dosage: 25 MG, 1X/DAY
     Dates: start: 20090817
  4. FUROSEMIDE [Concomitant]
     Dosage: 40 MG, 1X/DAY
     Dates: start: 20090817
  5. LANSOPRAZOLE [Concomitant]
     Dosage: 30 MG, 1X/DAY
     Dates: start: 20090817
  6. ALENDRONIC ACID [Concomitant]
     Dosage: 70 MG, WEEKLY
     Dates: start: 20090817
  7. DOMPERIDONE [Concomitant]
     Dosage: 20 MG, 1X/DAY
     Dates: start: 20090817
  8. LEVOTHYROXINE [Concomitant]
     Dosage: 25 MG, 1X/DAY
     Dates: start: 20090817

REACTIONS (1)
  - ENCEPHALOPATHY [None]
